FAERS Safety Report 17247169 (Version 1)
Quarter: 2019Q4

REPORT INFORMATION
  Report Type: Spontaneous
  Country: US (occurrence: US)
  Receive Date: 20191213
  Receipt Date: 20191213
  Transmission Date: 20200122
  Serious: Yes (Hospitalization, Other)
  Sender: FDA-Public Use
  Company Number: None

PATIENT
  Age: 51 Year
  Sex: Female

DRUGS (7)
  1. CYCLOBENZAPR [Concomitant]
     Active Substance: CYCLOBENZAPRINE
  2. METHOTREXATE. [Concomitant]
     Active Substance: METHOTREXATE
  3. PROBIOTIC CAP [Concomitant]
  4. HUMIRA [Suspect]
     Active Substance: ADALIMUMAB
     Indication: PSORIATIC ARTHROPATHY
     Route: 058
     Dates: start: 20160701
  5. FOLIC ACID. [Concomitant]
     Active Substance: FOLIC ACID
  6. ALEVE [Concomitant]
     Active Substance: NAPROXEN SODIUM
  7. METHOTREXATE. [Concomitant]
     Active Substance: METHOTREXATE

REACTIONS (2)
  - Therapy cessation [None]
  - Breast conserving surgery [None]
